FAERS Safety Report 4923797-0 (Version None)
Quarter: 2006Q1

REPORT INFORMATION
  Report Type: 
  Country: None (occurrence: None)
  Receive Date: 20060227
  Receipt Date: 20050908
  Transmission Date: 20060701
  Serious: Yes (Hospitalization, Other)
  Sender: FDA-Public Use
  Company Number: US-MERCK-0509USA01064

PATIENT
  Age: 62 Year
  Sex: Female
  Weight: 68 kg

DRUGS (13)
  1. VIOXX [Suspect]
     Indication: OSTEOARTHRITIS
     Route: 048
     Dates: start: 20010601, end: 20020701
  2. PREMARIN [Concomitant]
     Route: 065
  3. PREVACID [Concomitant]
     Route: 065
  4. QUININE SULFATE [Concomitant]
     Route: 065
  5. NORVASC [Concomitant]
     Route: 065
  6. TRICOR [Concomitant]
     Route: 065
  7. ZESTRIL [Concomitant]
     Route: 065
  8. ALLEGRA [Concomitant]
     Route: 065
  9. GEMFIBROZIL [Concomitant]
     Route: 065
  10. WELCHOL [Concomitant]
     Route: 065
  11. ACIPHEX [Concomitant]
     Route: 065
  12. RELAFEN [Concomitant]
     Route: 065
  13. MIACALCIN [Concomitant]
     Route: 065

REACTIONS (19)
  - ABDOMINAL MASS [None]
  - ABDOMINAL WALL DISORDER [None]
  - ARTHRALGIA [None]
  - BACK PAIN [None]
  - BLOOD GLUCOSE INCREASED [None]
  - BREAST MALFORMATION [None]
  - CORONARY ARTERY DISEASE [None]
  - DYSPNOEA [None]
  - HYPERTENSION [None]
  - INJURY [None]
  - IRON DEFICIENCY ANAEMIA [None]
  - LIPOMA [None]
  - MYOCARDIAL INFARCTION [None]
  - NOCTURIA [None]
  - RENAL FAILURE [None]
  - SHOULDER PAIN [None]
  - THROMBOCYTHAEMIA [None]
  - UMBILICAL HERNIA [None]
  - VENTRICULAR TACHYCARDIA [None]
